FAERS Safety Report 13647473 (Version 1)
Quarter: 2017Q2

REPORT INFORMATION
  Report Type: Spontaneous
  Country: US (occurrence: US)
  Receive Date: 20170613
  Receipt Date: 20170613
  Transmission Date: 20170830
  Serious: Yes (Other)
  Sender: FDA-Public Use
  Company Number: US-PRAGMA PHARMACEUTICALS, LLC-2017PRG00054

PATIENT
  Sex: Male

DRUGS (7)
  1. KEFLEX [Suspect]
     Active Substance: CEPHALEXIN
     Indication: INFECTION
  2. BABY ASPIRIN [Concomitant]
     Active Substance: ASPIRIN
  3. SUTENT [Concomitant]
     Active Substance: SUNITINIB MALATE
     Dosage: 50 MG, DAILY FOR 28 DAYS ON AND 14 DAYS OFF
     Dates: start: 201705
  4. CELEXA [Concomitant]
     Active Substance: CITALOPRAM HYDROBROMIDE
  5. XANAX [Concomitant]
     Active Substance: ALPRAZOLAM
  6. TENORMIN [Concomitant]
     Active Substance: ATENOLOL
  7. SUTENT [Concomitant]
     Active Substance: SUNITINIB MALATE
     Indication: METASTASES TO LIVER
     Dosage: 50 MG, DAILY FOR 28 DAYS ON AND 14 DAYS OFF

REACTIONS (3)
  - Wound secretion [Recovered/Resolved]
  - Drug ineffective [Recovered/Resolved]
  - Rash pruritic [Unknown]
